FAERS Safety Report 4606580-5 (Version None)
Quarter: 2005Q2

REPORT INFORMATION
  Report Type: 
  Country: None (occurrence: None)
  Receive Date: 20050223
  Receipt Date: 20040707
  Transmission Date: 20051028
  Serious: Yes (Other)
  Sender: FDA-Public Use
  Company Number: WAES 0407USA00558

PATIENT
  Age: 75 Year
  Sex: Male
  Weight: 63.5036 kg

DRUGS (1)
  1. ZOCOR [Suspect]
     Dosage: 20 MG/PO
     Route: 048
     Dates: end: 20040101

REACTIONS (1)
  - RASH MACULO-PAPULAR [None]
